FAERS Safety Report 13071238 (Version 1)
Quarter: 2016Q4

REPORT INFORMATION
  Report Type: Report from Study
  Country: FR (occurrence: FR)
  Receive Date: 20161229
  Receipt Date: 20161229
  Transmission Date: 20170207
  Serious: Yes (Hospitalization)
  Sender: FDA-Public Use
  Company Number: FR-ROCHE-1609650

PATIENT
  Age: 74 Year
  Sex: Male
  Weight: 84 kg

DRUGS (29)
  1. FORTUM [Concomitant]
     Active Substance: CEFTAZIDIME
     Indication: SEPSIS
     Route: 042
     Dates: start: 20150731, end: 20150813
  2. LEVOTHYROX [Concomitant]
     Active Substance: LEVOTHYROXINE
     Indication: HYPOTHYROIDISM
     Route: 048
     Dates: start: 20150728, end: 20150818
  3. DIFFU K [Concomitant]
     Active Substance: POTASSIUM CHLORIDE
     Indication: ARRHYTHMIA
     Route: 048
     Dates: start: 20150730, end: 20150806
  4. CORDARONE [Concomitant]
     Active Substance: AMIODARONE HYDROCHLORIDE
     Indication: ARRHYTHMIA
     Route: 048
     Dates: start: 20150804, end: 20150804
  5. BISOPROLOL [Concomitant]
     Active Substance: BISOPROLOL
     Indication: ARRHYTHMIA
     Route: 048
     Dates: start: 20150804
  6. LASILIX [Concomitant]
     Active Substance: FUROSEMIDE
     Indication: ARRHYTHMIA
     Route: 042
     Dates: start: 20150804, end: 20150807
  7. RED BLOOD CELLS [Concomitant]
     Active Substance: HUMAN RED BLOOD CELL
     Route: 042
     Dates: start: 20150719, end: 20150719
  8. PREVISCAN (FRANCE) [Concomitant]
     Active Substance: FLUINDIONE
     Indication: ARRHYTHMIA
     Dosage: 1 TABLET EVERY DAY
     Route: 048
     Dates: end: 20150730
  9. ATEZOLIZUMAB [Suspect]
     Active Substance: ATEZOLIZUMAB
     Indication: BLADDER TRANSITIONAL CELL CARCINOMA METASTATIC
     Dosage: MOST RECENT DOSE ON 02/JUL/2015,13/AUG/2015
     Route: 042
     Dates: start: 20150611
  10. LEVOTHYROX [Concomitant]
     Active Substance: LEVOTHYROXINE
     Route: 048
     Dates: start: 20150728, end: 20150818
  11. VENTOLINE [Concomitant]
     Active Substance: ALBUTEROL
     Indication: CHRONIC OBSTRUCTIVE PULMONARY DISEASE
     Dosage: 2 SPRAYS
     Route: 055
     Dates: start: 20150702
  12. AUGMENTIN [Concomitant]
     Active Substance: AMOXICILLIN\CLAVULANATE POTASSIUM
     Indication: SEPSIS
     Route: 042
     Dates: start: 20150729, end: 20150731
  13. LOVENOX [Concomitant]
     Active Substance: ENOXAPARIN SODIUM
     Indication: ARRHYTHMIA
     Route: 058
     Dates: start: 20150805, end: 20150820
  14. VALSARTAN. [Concomitant]
     Active Substance: VALSARTAN
     Indication: HYPERTENSION
     Route: 048
     Dates: start: 1999
  15. PARACETAMOL [Concomitant]
     Active Substance: ACETAMINOPHEN
     Indication: PELVIC PAIN
     Dosage: PRN (AS NEEDED)
     Route: 048
  16. LEVOTHYROX [Concomitant]
     Active Substance: LEVOTHYROXINE
     Indication: HYPOTHYROIDISM
     Route: 048
     Dates: end: 20150727
  17. LEVOTHYROX [Concomitant]
     Active Substance: LEVOTHYROXINE
     Route: 048
     Dates: start: 20150727
  18. INEXIUM [Concomitant]
     Active Substance: ESOMEPRAZOLE
     Route: 042
     Dates: start: 20150804, end: 20150826
  19. CORDARONE [Concomitant]
     Active Substance: AMIODARONE HYDROCHLORIDE
     Route: 048
     Dates: start: 20150806
  20. DIGOXINE [Concomitant]
     Active Substance: DIGOXIN
     Indication: ARRHYTHMIA
     Route: 042
     Dates: start: 20150804, end: 20150804
  21. ACTISKENAN [Concomitant]
     Active Substance: MORPHINE SULFATE
     Indication: PELVIC PAIN
     Dosage: PRN (AS NEEDED)
     Route: 048
  22. FLAGYL [Concomitant]
     Active Substance: METRONIDAZOLE\METRONIDAZOLE HYDROCHLORIDE
     Indication: SEPSIS
     Route: 042
     Dates: start: 20150730, end: 20150731
  23. AMIKLIN [Concomitant]
     Active Substance: AMIKACIN SULFATE
     Indication: SEPSIS
     Route: 042
     Dates: start: 20150731, end: 20150802
  24. TRIFLUCAN [Concomitant]
     Active Substance: FLUCONAZOLE
     Indication: SEPSIS
     Route: 042
     Dates: start: 20150802, end: 20150810
  25. RED BLOOD CELLS [Concomitant]
     Active Substance: HUMAN RED BLOOD CELL
     Indication: ANAEMIA
     Route: 042
     Dates: start: 20150718, end: 20150718
  26. RED BLOOD CELLS [Concomitant]
     Active Substance: HUMAN RED BLOOD CELL
     Route: 042
     Dates: start: 20150731, end: 20150731
  27. SKENAN [Concomitant]
     Active Substance: MORPHINE SULFATE
     Indication: PELVIC PAIN
     Route: 048
  28. CORDARONE [Concomitant]
     Active Substance: AMIODARONE HYDROCHLORIDE
     Route: 048
     Dates: start: 20150805, end: 20150805
  29. DITROPAN [Concomitant]
     Active Substance: OXYBUTYNIN CHLORIDE
     Indication: URINARY INCONTINENCE
     Route: 048
     Dates: start: 20150731

REACTIONS (2)
  - Respiratory distress [Recovered/Resolved]
  - Dyspnoea [Recovered/Resolved]

NARRATIVE: CASE EVENT DATE: 20150629
